FAERS Safety Report 6094047-X (Version None)
Quarter: 2009Q1

REPORT INFORMATION
  Report Type: 
  Country: None (occurrence: None)
  Receive Date: 20090224
  Receipt Date: 20090224
  Transmission Date: 20090719
  Serious: Yes (Life-Threatening, Hospitalization, Other)
  Sender: FDA-Public Use
  Company Number: None

PATIENT
  Age: 30 Year
  Sex: Male
  Weight: 68.0396 kg

DRUGS (2)
  1. NEURONTIN [Suspect]
     Indication: CONVULSION
     Dosage: NEURONTIN 600 MGS 300MGS THREE TIMES A DAY PO EVERY DAY
     Route: 048
     Dates: start: 20090104, end: 20090214
  2. GABAPENTIN [Suspect]
     Indication: ANXIETY
     Dosage: GABAPENTIN 1,8000 MGS 600MGS THREE A DAY PO
     Route: 048

REACTIONS (3)
  - CONVULSION [None]
  - DYSPNOEA [None]
  - HYPERTENSION [None]
